FAERS Safety Report 21573054 (Version 1)
Quarter: 2022Q4

REPORT INFORMATION
  Report Type: Spontaneous
  Country: IT (occurrence: IT)
  Receive Date: 20221109
  Receipt Date: 20221109
  Transmission Date: 20230113
  Serious: Yes (Hospitalization)
  Sender: FDA-Public Use
  Company Number: None

PATIENT
  Age: 39 Year
  Sex: Female
  Weight: 58 kg

DRUGS (3)
  1. ETHINYL ESTRADIOL\LEVONORGESTREL [Suspect]
     Active Substance: ETHINYL ESTRADIOL\LEVONORGESTREL
     Indication: Adenomyosis
     Dosage: UNK
     Route: 048
     Dates: start: 20220810, end: 20220927
  2. FOLIC ACID [Concomitant]
     Active Substance: FOLIC ACID
     Indication: Vitamin supplementation
     Dosage: 1 DF, DAILY (FREQ: 24 H)
     Route: 048
  3. TRIAZOLAM [Concomitant]
     Active Substance: TRIAZOLAM
     Indication: Insomnia
     Dosage: 0.12 MG, (1/2 CPR DA 0,25/DIE AL BISOGNO PER INSONNIA)
     Route: 048

REACTIONS (4)
  - Migraine with aura [Recovered/Resolved with Sequelae]
  - Vision blurred [Recovered/Resolved]
  - Scintillating scotoma [Recovered/Resolved]
  - Off label use [Unknown]

NARRATIVE: CASE EVENT DATE: 20220929
